FAERS Safety Report 8597582-5 (Version None)
Quarter: 2012Q3

REPORT INFORMATION
  Report Type: 
  Country: None (occurrence: None)
  Receive Date: 20120816
  Receipt Date: 20120803
  Transmission Date: 20120928
  Serious: No
  Sender: FDA-Public Use
  Company Number: US-BAYER-2012-079789

PATIENT
  Age: 24 Year
  Sex: Male
  Weight: 83.9 kg

DRUGS (2)
  1. ALEVE (CAPLET) [Suspect]
     Indication: ANALGESIC THERAPY
     Dosage: 1 DF, UNK
     Route: 048
     Dates: start: 20120803
  2. ALEVE (CAPLET) [Suspect]
     Dosage: 2 DF, UNK
     Route: 048
     Dates: start: 20120803

REACTIONS (1)
  - NO ADVERSE EVENT [None]
